FAERS Safety Report 6685766-2 (Version None)
Quarter: 2010Q2

REPORT INFORMATION
  Report Type: 
  Country: None (occurrence: None)
  Receive Date: 20100419
  Receipt Date: 20100409
  Transmission Date: 20101027
  Serious: Yes (Hospitalization)
  Sender: FDA-Public Use
  Company Number: JP-JNJFOC-20050902302

PATIENT
  Sex: Female
  Weight: 70 kg

DRUGS (8)
  1. CRAVIT [Suspect]
     Indication: BACTERAEMIA
     Route: 048
     Dates: start: 20050827, end: 20050904
  2. CEFAMEZIN [Concomitant]
     Route: 041
     Dates: start: 20050821, end: 20050822
  3. GENTAMICIN [Concomitant]
     Route: 041
     Dates: start: 20050822
  4. VICCILLIN [Concomitant]
     Route: 041
  5. LOXONIN [Concomitant]
     Route: 048
  6. MUCOSTA [Concomitant]
     Route: 065
  7. TARGOCID [Concomitant]
     Indication: BACTERAEMIA
     Route: 042
  8. TARGOCID [Concomitant]
     Route: 042

REACTIONS (1)
  - SYNCOPE [None]
